FAERS Safety Report 5668077-3 (Version None)
Quarter: 2008Q1

REPORT INFORMATION
  Report Type: 
  Country: None (occurrence: None)
  Receive Date: 20080315
  Receipt Date: 20080213
  Transmission Date: 20080703
  Serious: No
  Sender: FDA-Public Use
  Company Number: US-ABBOTT-08P-163-0438377-00

PATIENT
  Sex: Female
  Weight: 100.33 kg

DRUGS (3)
  1. HUMIRA [Suspect]
     Indication: PSORIASIS
     Route: 058
     Dates: start: 20070201, end: 20080201
  2. CELECOXIB [Concomitant]
     Indication: PSORIASIS
     Route: 048
  3. MUSCLE RELAXANTS [Concomitant]
     Indication: SLEEP DISORDER THERAPY
     Route: 048

REACTIONS (1)
  - PSORIASIS [None]
